FAERS Safety Report 8169871-X (Version None)
Quarter: 2012Q1

REPORT INFORMATION
  Report Type: 
  Country: None (occurrence: None)
  Receive Date: 20120104
  Receipt Date: 20111019
  Transmission Date: 20120608
  Serious: No
  Sender: FDA-Public Use
  Company Number: 2011HGS-002658

PATIENT
  Age: 36 Year
  Sex: Female
  Weight: 60.3284 kg

DRUGS (8)
  1. PREDNISONE [Concomitant]
  2. TRAMADOL HCL [Concomitant]
  3. BENLYSTA [Suspect]
     Indication: SYSTEMIC LUPUS ERYTHEMATOSUS
     Dosage: 10 MG/KG, 1 IN 14 D, INTRAVENOUS
     Route: 041
     Dates: start: 20110922
  4. FORTEO INJECTION (TERIPARATIDE) (TERIPARATIDE) [Concomitant]
  5. RESTASIS (CICLOSPORIN) (CICLOSPORIN) [Concomitant]
  6. IBUPROFEN TABLETS [Concomitant]
  7. PLAQUENIL (HYDROXYCHLOROQUINE SULFATE) (HYDROXYCHLOROQUINE SULFATE) [Concomitant]
  8. IMURAN [Concomitant]

REACTIONS (3)
  - EYE INFECTION [None]
  - OROPHARYNGEAL PAIN [None]
  - EAR INFECTION [None]
